APPROVED DRUG PRODUCT: MIPLYFFA
Active Ingredient: ARIMOCLOMOL CITRATE
Strength: EQ 47MG BASE
Dosage Form/Route: CAPSULE;ORAL
Application: N214927 | Product #001
Applicant: ZEVRA DENMARK AS
Approved: Sep 20, 2024 | RLD: Yes | RS: No | Type: RX

PATENTS:
Patent 11045460 | Expires: Aug 19, 2029
Patent 9884058 | Expires: Jun 26, 2029
Patent 9289472 | Expires: Aug 11, 2029

EXCLUSIVITY:
Code: NCE | Date: Sep 20, 2029
Code: ODE-496 | Date: Sep 20, 2031